FAERS Safety Report 8511644-X (Version None)
Quarter: 2012Q3

REPORT INFORMATION
  Report Type: 
  Country: None (occurrence: None)
  Receive Date: 20120716
  Receipt Date: 20120705
  Transmission Date: 20120928
  Serious: Yes (Other)
  Sender: FDA-Public Use
  Company Number: JP-VERTEX PHARMACEUTICALS INC.-AE-2012-005828

PATIENT
  Age: 64 Year
  Sex: Female

DRUGS (16)
  1. TELAVIC (TELAPREVIR) [Suspect]
     Indication: HEPATITIS C
     Route: 048
     Dates: start: 20120117, end: 20120410
  2. RIBAVIRIN [Concomitant]
     Route: 048
     Dates: start: 20120502, end: 20120508
  3. TRICHLORMETHIAZIDE [Concomitant]
     Route: 048
  4. PURSENNID [Concomitant]
     Route: 048
  5. RIBAVIRIN [Concomitant]
     Route: 048
     Dates: start: 20120410, end: 20120501
  6. RIBAVIRIN [Concomitant]
     Route: 048
     Dates: start: 20120516, end: 20120605
  7. PEGINTERFERON ALFA-2B [Concomitant]
     Indication: HEPATITIS C
     Route: 058
     Dates: start: 20120117, end: 20120703
  8. RIBAVIRIN [Concomitant]
     Route: 048
     Dates: start: 20120509, end: 20120515
  9. XYZAL [Concomitant]
     Route: 048
     Dates: start: 20120117, end: 20120320
  10. SELBEX [Concomitant]
     Route: 048
     Dates: start: 20120117, end: 20120703
  11. AMLODIPINE BESYLATE [Concomitant]
     Route: 048
  12. RIBAVIRIN [Concomitant]
     Route: 048
     Dates: start: 20120606, end: 20120703
  13. ZOLPIDEM [Concomitant]
     Route: 048
  14. EVISTA [Concomitant]
     Route: 048
     Dates: start: 20120117, end: 20120703
  15. XYZAL [Concomitant]
     Route: 048
     Dates: start: 20120321, end: 20120411
  16. RIBAVIRIN [Concomitant]
     Indication: HEPATITIS C
     Route: 048
     Dates: start: 20120117, end: 20120409

REACTIONS (3)
  - ANAEMIA [None]
  - WHITE BLOOD CELL COUNT DECREASED [None]
  - PLATELET COUNT DECREASED [None]
